FAERS Safety Report 8203688-2 (Version None)
Quarter: 2012Q1

REPORT INFORMATION
  Report Type: 
  Country: None (occurrence: None)
  Receive Date: 20120308
  Receipt Date: 20120223
  Transmission Date: 20120608
  Serious: Yes (Hospitalization)
  Sender: FDA-Public Use
  Company Number: B0782536A

PATIENT
  Sex: Male

DRUGS (2)
  1. NICOUMALONE TABLET (NICOMALONE) [Suspect]
     Indication: ATRIAL FIBRILLATION
     Dosage: 4 MG, ORAL
     Route: 048
     Dates: start: 19910101, end: 20111024
  2. DIGOXIN [Suspect]
     Indication: ATRIAL FIBRILLATION
     Dosage: 125 MG PER DAY, ORAL
     Route: 048
     Dates: start: 20111001, end: 20111024

REACTIONS (7)
  - ANAEMIA [None]
  - INTERNATIONAL NORMALISED RATIO INCREASED [None]
  - BLOOD SODIUM DECREASED [None]
  - LEG AMPUTATION [None]
  - TOXICITY TO VARIOUS AGENTS [None]
  - BRADYCARDIA [None]
  - BLOOD POTASSIUM INCREASED [None]
